FAERS Safety Report 9283682 (Version 3)
Quarter: 2013Q3

REPORT INFORMATION
  Report Type: Spontaneous
  Country: US (occurrence: US)
  Receive Date: 20130510
  Receipt Date: 20130906
  Transmission Date: 20140515
  Serious: Yes (Hospitalization, Disabling, Other)
  Sender: FDA-Public Use
  Company Number: US-GLAXOSMITHKLINE-A1022349A

PATIENT
  Age: 12 Year
  Sex: Male
  Weight: 72.8 kg

DRUGS (3)
  1. PROMACTA [Suspect]
     Indication: IMMUNE THROMBOCYTOPENIC PURPURA
     Dosage: 37.5MG PER DAY
     Route: 048
     Dates: start: 20130418, end: 20130502
  2. PENICILLIN [Concomitant]
     Indication: SPLENECTOMY
     Dosage: 250MG TWICE PER DAY
     Route: 048
     Dates: start: 20060124, end: 20130429
  3. FERROUS SULFATE [Concomitant]
     Indication: IRON DEFICIENCY ANAEMIA
     Dosage: 325MG PER DAY
     Route: 048
     Dates: start: 20091029

REACTIONS (4)
  - Pancreatitis [Recovered/Resolved]
  - Haemorrhage intracranial [Recovered/Resolved]
  - Platelet count decreased [Recovered/Resolved]
  - Hypoaesthesia [Recovered/Resolved]
